FAERS Safety Report 5710026-3 (Version None)
Quarter: 2008Q2

REPORT INFORMATION
  Report Type: 
  Country: None (occurrence: None)
  Receive Date: 20080418
  Receipt Date: 20080408
  Transmission Date: 20081010
  Serious: Yes (Other)
  Sender: FDA-Public Use
  Company Number: US-ELI_LILLY_AND_COMPANY-US200804001957

PATIENT
  Sex: Female

DRUGS (7)
  1. CYMBALTA [Suspect]
     Indication: DEPRESSION
     Dosage: 60 MG, EACH MORNING
  2. CYMBALTA [Suspect]
     Dosage: 30 MG, EACH EVENING
  3. THYROID THERAPY [Concomitant]
  4. LISINOPRIL [Concomitant]
  5. FOLATE [Concomitant]
  6. NIASPAN [Concomitant]
  7. PROGESTERONE [Concomitant]

REACTIONS (6)
  - AGITATION [None]
  - ANXIETY [None]
  - BREAST CANCER [None]
  - FEELING ABNORMAL [None]
  - INSOMNIA [None]
  - THINKING ABNORMAL [None]
